FAERS Safety Report 7621753-5 (Version None)
Quarter: 2011Q3

REPORT INFORMATION
  Report Type: 
  Country: None (occurrence: None)
  Receive Date: 20110719
  Receipt Date: 20110715
  Transmission Date: 20111222
  Serious: Yes (Death)
  Sender: FDA-Public Use
  Company Number: US-ASTRAZENECA-2011SE42473

PATIENT
  Age: 48 Year
  Sex: Female

DRUGS (1)
  1. TENORMIN [Suspect]
     Dosage: 6580 NG
     Route: 065
     Dates: start: 20110528

REACTIONS (2)
  - OVERDOSE [None]
  - SUICIDE ATTEMPT [None]
